FAERS Safety Report 7655079-0 (Version None)
Quarter: 2011Q3

REPORT INFORMATION
  Report Type: 
  Country: None (occurrence: None)
  Receive Date: 20110728
  Receipt Date: 20110712
  Transmission Date: 20111222
  Serious: Yes (Other)
  Sender: FDA-Public Use
  Company Number: AUR-APL-2011-02723

PATIENT
  Age: 15 Year
  Sex: Male

DRUGS (1)
  1. CITALOPRAM HYDROBROMIDE [Suspect]
     Indication: OBSESSIVE-COMPULSIVE DISORDER
     Dosage: (20 MG)

REACTIONS (11)
  - DYSGRAPHIA [None]
  - BIPOLAR DISORDER [None]
  - DISINHIBITION [None]
  - INSOMNIA [None]
  - IMPULSIVE BEHAVIOUR [None]
  - MUSCLE TWITCHING [None]
  - CELLULITIS [None]
  - IRRITABILITY [None]
  - TREMOR [None]
  - RESTLESSNESS [None]
  - TONGUE DISORDER [None]
